FAERS Safety Report 9891821 (Version 1)
Quarter: 2014Q1

REPORT INFORMATION
  Report Type: Spontaneous
  Country: US (occurrence: None)
  Receive Date: 20140210
  Receipt Date: 20140210
  Transmission Date: 20141002
  Serious: Yes (Other)
  Sender: FDA-Public Use
  Company Number: AUR-APL-2014-01193

PATIENT
  Age: 50 Year
  Sex: Female

DRUGS (6)
  1. CITALOPRAM [Suspect]
     Indication: PRODUCT USED FOR UNKNOWN INDICATION
     Route: 048
  2. HYDROCODONE PARACETAMOL [Suspect]
     Indication: PRODUCT USED FOR UNKNOWN INDICATION
  3. LISINOPRIL (LISINOPRIL) [Suspect]
     Indication: PRODUCT USED FOR UNKNOWN INDICATION
  4. PREGABALIN (PREGABALIN) [Suspect]
     Indication: PRODUCT USED FOR UNKNOWN INDICATION
  5. TRAMADOL (TRAMADOL) [Suspect]
     Indication: PRODUCT USED FOR UNKNOWN INDICATION
  6. DICLOFENAC (DICLOFENAC) [Suspect]
     Indication: PRODUCT USED FOR UNKNOWN INDICATION

REACTIONS (5)
  - Toxicity to various agents [None]
  - Completed suicide [None]
  - Cardiac arrest [None]
  - Respiratory arrest [None]
  - Intentional self-injury [None]
